FAERS Safety Report 4746729-7 (Version None)
Quarter: 2005Q3

REPORT INFORMATION
  Report Type: 
  Country: None (occurrence: None)
  Receive Date: 20050817
  Receipt Date: 20050808
  Transmission Date: 20060218
  Serious: Yes (Other)
  Sender: FDA-Public Use
  Company Number: GB-GLAXOSMITHKLINE-B0390253A

PATIENT
  Age: 69 Year
  Sex: Female

DRUGS (8)
  1. ZINACEF [Suspect]
     Dosage: 750MG PER DAY
     Route: 042
  2. GENTAMICIN [Suspect]
     Route: 065
  3. LIGNOCAINE [Suspect]
     Route: 065
  4. AMETHOCAINE [Suspect]
     Route: 065
  5. HEALONID [Suspect]
     Route: 065
  6. CYCLOPENTOLATE HYDROCHLORIDE [Suspect]
     Route: 065
  7. PHENYLEPHRINE [Suspect]
     Route: 065
  8. BENOXINATE HYDROCHLORIDE [Suspect]
     Route: 065

REACTIONS (1)
  - CORNEAL EPITHELIUM DISORDER [None]
